FAERS Safety Report 11682270 (Version 2)
Quarter: 2015Q4

REPORT INFORMATION
  Report Type: Report from Study
  Country: US (occurrence: US)
  Receive Date: 20151029
  Receipt Date: 20151104
  Transmission Date: 20160304
  Serious: Yes (Other)
  Sender: FDA-Public Use
  Company Number: PHEH2015US021926

PATIENT
  Sex: Female

DRUGS (1)
  1. GILENYA [Suspect]
     Active Substance: FINGOLIMOD HYDROCHLORIDE
     Indication: MULTIPLE SCLEROSIS
     Dosage: 0.5 MG, QD
     Route: 048
     Dates: start: 20151006

REACTIONS (7)
  - Palpitations [Unknown]
  - Scar [Unknown]
  - Ligament sprain [Not Recovered/Not Resolved]
  - Balance disorder [Unknown]
  - Foot fracture [Unknown]
  - Blood pressure increased [Unknown]
  - Fall [Unknown]
